FAERS Safety Report 5233047-6 (Version None)
Quarter: 2007Q1

REPORT INFORMATION
  Report Type: 
  Country: None (occurrence: None)
  Receive Date: 20070207
  Receipt Date: 20061205
  Transmission Date: 20070707
  Serious: Yes (Life-Threatening)
  Sender: FDA-Public Use
  Company Number: DE-BOEHRINGER INGELHEIM GMBH, GERMANY-2006-DE-06465DE

PATIENT
  Age: 80 Year
  Sex: Female

DRUGS (13)
  1. AGGRENOX [Suspect]
  2. NOVAMIN [Concomitant]
  3. TRAMADOL HCL [Concomitant]
  4. IBUHEXAL 600 [Concomitant]
  5. BELOC ZOK [Concomitant]
  6. ATORVASTATIN CALCIUM [Concomitant]
  7. PANTOZOL [Concomitant]
  8. DELIX 5 PLUS [Concomitant]
  9. DELIX 5 [Concomitant]
  10. ACC ION [Concomitant]
  11. CARDULAR PP 4 MG [Concomitant]
  12. MONOBAL 5 [Concomitant]
  13. CLEXANE [Concomitant]

REACTIONS (1)
  - HAEMOGLOBIN DECREASED [None]
